FAERS Safety Report 9252499 (Version 1)
Quarter: 2013Q2

REPORT INFORMATION
  Report Type: Spontaneous
  Country: GB (occurrence: GB)
  Receive Date: 20130424
  Receipt Date: 20130424
  Transmission Date: 20140414
  Serious: Yes (Hospitalization, Disabling, Other)
  Sender: FDA-Public Use
  Company Number: GB-009507513-2009SP003346

PATIENT
  Age: 62 Year
  Sex: Female
  Weight: 46.6 kg

DRUGS (9)
  1. TEMODAL [Suspect]
     Indication: GLIOBLASTOMA
     Dosage: DOSE 75 MG/M2 RECEIVED FOR DAY 1-40
     Route: 048
     Dates: start: 20081005, end: 20081114
  2. BEBETINA [Concomitant]
     Indication: HEADACHE
     Dosage: UNK UNK, PRN
     Route: 065
  3. DEXAMETHASONE [Concomitant]
     Indication: PRODUCT USED FOR UNKNOWN INDICATION
     Dosage: 6 MG, QD
  4. FERROUS SULFATE [Concomitant]
     Indication: PRODUCT USED FOR UNKNOWN INDICATION
     Dosage: 600 MG, QD
  5. LANSOPRAZOLE [Concomitant]
     Indication: PRODUCT USED FOR UNKNOWN INDICATION
     Dosage: 30 MG, QD
  6. CRIXOFOL [Concomitant]
     Indication: ANAESTHESIA PROCEDURE
     Dosage: 150 MG, ONCE
  7. ROCURONIUM BROMIDE [Concomitant]
     Indication: ANAESTHESIA PROCEDURE
     Dosage: 70 MG, UNK
  8. CEFUROXIME [Concomitant]
     Indication: ANAESTHESIA PROCEDURE
     Dosage: 1.5 G, UNK
  9. ACETAMINOPHEN [Concomitant]
     Indication: HEADACHE
     Dosage: UNK, PRN

REACTIONS (3)
  - Hepatitis [Not Recovered/Not Resolved]
  - Hepatic failure [Not Recovered/Not Resolved]
  - Cholangitis [Not Recovered/Not Resolved]
